FAERS Safety Report 8310691-0 (Version None)
Quarter: 2012Q2

REPORT INFORMATION
  Report Type: 
  Country: None (occurrence: None)
  Receive Date: 20120425
  Receipt Date: 20120418
  Transmission Date: 20120825
  Serious: Yes (Other)
  Sender: FDA-Public Use
  Company Number: JP-PFIZER INC-2012095659

PATIENT
  Age: 34 Year
  Sex: Female

DRUGS (1)
  1. NAFARELIN ACETATE [Suspect]
     Indication: ENDOMETRIOSIS
     Dosage: UNK
     Route: 045
     Dates: start: 20080801

REACTIONS (1)
  - HYPERTHYROIDISM [None]
